FAERS Safety Report 6018495-9 (Version None)
Quarter: 2008Q4

REPORT INFORMATION
  Report Type: 
  Country: None (occurrence: None)
  Receive Date: 20081223
  Receipt Date: 20081218
  Transmission Date: 20090506
  Serious: Yes (Other)
  Sender: FDA-Public Use
  Company Number: NL-ABBOTT-08P-114-0474824-00

PATIENT
  Sex: Female
  Weight: 100 kg

DRUGS (4)
  1. HUMIRA [Suspect]
     Indication: RHEUMATOID ARTHRITIS
     Route: 058
     Dates: start: 20070101, end: 20081201
  2. ENBREL [Suspect]
     Indication: RHEUMATOID ARTHRITIS
     Dates: start: 20071201
  3. METHOTREXATE [Suspect]
     Indication: RHEUMATOID ARTHRITIS
     Route: 048
     Dates: start: 20060101
  4. FOLIC ACID ACTAVIS TABLET [Concomitant]
     Indication: PROPHYLAXIS
     Route: 048
     Dates: start: 20060101

REACTIONS (3)
  - INTRA-UTERINE DEATH [None]
  - PLACENTAL DISORDER [None]
  - PREMATURE RUPTURE OF MEMBRANES [None]
